FAERS Safety Report 24260845 (Version 1)
Quarter: 2024Q3

REPORT INFORMATION
  Report Type: Spontaneous
  Country: CA (occurrence: CA)
  Receive Date: 20240828
  Receipt Date: 20240828
  Transmission Date: 20241017
  Serious: Yes (Other)
  Sender: HLS THERAPEUTICS
  Company Number: CA-HLS-202402038

PATIENT
  Sex: Male

DRUGS (1)
  1. CLOZAPINE [Suspect]
     Active Substance: CLOZAPINE
     Indication: Antipsychotic therapy
     Dosage: TABLETS DOSAGE FORM
     Route: 065

REACTIONS (9)
  - Dyskinesia [Unknown]
  - Enuresis [Unknown]
  - Hallucination, visual [Unknown]
  - Orthostatic hypotension [Unknown]
  - Salivary hypersecretion [Unknown]
  - Sedation [Unknown]
  - Seizure like phenomena [Unknown]
  - Tachycardia [Unknown]
  - Weight increased [Unknown]
